FAERS Safety Report 7406659-9 (Version None)
Quarter: 2011Q2

REPORT INFORMATION
  Report Type: 
  Country: None (occurrence: None)
  Receive Date: 20110411
  Receipt Date: 20110401
  Transmission Date: 20111010
  Serious: Yes (Hospitalization)
  Sender: FDA-Public Use
  Company Number: RO-BRISTOL-MYERS SQUIBB COMPANY-15650542

PATIENT
  Age: 61 Year
  Sex: Female

DRUGS (2)
  1. SPRYCEL [Suspect]
     Indication: CHRONIC MYELOID LEUKAEMIA
     Dosage: INTER ON: FEB2011, DOSE REDUCED TO 70 MG
     Route: 048
     Dates: start: 20080101
  2. NILOTINIB [Suspect]

REACTIONS (6)
  - LEUKOCYTOSIS [None]
  - LYMPHOCYTOSIS [None]
  - PLEURAL EFFUSION [None]
  - PERICARDITIS [None]
  - ASCITES [None]
  - PLEURISY [None]
